FAERS Safety Report 4593816-2 (Version None)
Quarter: 2005Q1

REPORT INFORMATION
  Report Type: 
  Country: None (occurrence: None)
  Receive Date: 20050301
  Receipt Date: 20050216
  Transmission Date: 20050727
  Serious: Yes (Other)
  Sender: FDA-Public Use
  Company Number: US-AMGEN-US116132

PATIENT
  Sex: Female

DRUGS (8)
  1. ENBREL [Suspect]
     Indication: DRUG USE FOR UNKNOWN INDICATION
     Dates: start: 20011128, end: 20030523
  2. ARAVA [Concomitant]
     Dates: start: 19990811, end: 19991223
  3. HUMIRA [Concomitant]
     Dates: start: 20030729
  4. CELEBREX [Concomitant]
  5. VIOXX [Concomitant]
  6. METHOTREXATE [Concomitant]
  7. AZULFIDINE [Concomitant]
  8. PLAQUENIL [Concomitant]

REACTIONS (3)
  - CARDIAC FAILURE CONGESTIVE [None]
  - LUPUS-LIKE SYNDROME [None]
  - SJOGREN'S SYNDROME [None]
